FAERS Safety Report 20016104 (Version 1)
Quarter: 2021Q4

REPORT INFORMATION
  Report Type: Spontaneous
  Country: US (occurrence: None)
  Receive Date: 20211102
  Receipt Date: 20211102
  Transmission Date: 20220303
  Serious: Yes (Hospitalization)
  Sender: FDA-Public Use
  Company Number: None

PATIENT
  Sex: Female
  Weight: 59 kg

DRUGS (4)
  1. CARBOPLATIN [Suspect]
     Active Substance: CARBOPLATIN
     Dates: end: 20210915
  2. TAXOL [Suspect]
     Active Substance: PACLITAXEL
     Dates: end: 20210915
  3. ALBUTEROL [Concomitant]
     Active Substance: ALBUTEROL
  4. BREO ELLIPTA [Concomitant]
     Active Substance: FLUTICASONE FUROATE\VILANTEROL TRIFENATATE

REACTIONS (3)
  - Dyspnoea [None]
  - Pneumonia [None]
  - Lung opacity [None]

NARRATIVE: CASE EVENT DATE: 20211008
